FAERS Safety Report 4305414-6 (Version None)
Quarter: 2004Q1

REPORT INFORMATION
  Report Type: 
  Country: None (occurrence: None)
  Receive Date: 20040226
  Receipt Date: 20031029
  Transmission Date: 20041129
  Serious: No
  Sender: FDA-Public Use
  Company Number: US-BRISTOL-MYERS SQUIBB COMPANY-12422481

PATIENT
  Age: 54 Year
  Sex: Female
  Weight: 66 kg

DRUGS (11)
  1. TAXOL [Suspect]
     Indication: LUNG NEOPLASM MALIGNANT
     Dosage: DAYS 1, 8 AND 15 OF CYCLE
     Route: 042
     Dates: start: 20031006
  2. CARBOPLATIN [Suspect]
     Indication: LUNG NEOPLASM MALIGNANT
     Dosage: AUC 6
     Route: 042
     Dates: start: 20031006, end: 20031006
  3. DIPHENHYDRAMINE HCL [Concomitant]
     Indication: PREMEDICATION
     Route: 042
     Dates: start: 20031006
  4. DEXAMETHASONE [Concomitant]
     Indication: PREMEDICATION
     Route: 042
     Dates: start: 20031006
  5. CIMETIDINE HCL [Concomitant]
     Indication: PREMEDICATION
     Route: 042
     Dates: start: 20031006
  6. ONDANSETRON [Concomitant]
     Indication: PREMEDICATION
     Route: 048
     Dates: start: 20031006
  7. MS CONTIN [Concomitant]
  8. MS CONTIN [Concomitant]
  9. COMPAZINE [Concomitant]
  10. CELEBREX [Concomitant]
  11. ELAVIL [Concomitant]

REACTIONS (2)
  - ANOREXIA [None]
  - NAUSEA [None]
